FAERS Safety Report 6466266-1 (Version None)
Quarter: 2009Q4

REPORT INFORMATION
  Report Type: 
  Country: None (occurrence: None)
  Receive Date: 20091202
  Receipt Date: 20091123
  Transmission Date: 20100525
  Serious: Yes (Other)
  Sender: FDA-Public Use
  Company Number: PHHY2009GB42092

PATIENT
  Sex: Female
  Weight: 114.3 kg

DRUGS (8)
  1. CLOZARIL [Suspect]
     Dosage: 250 MG, UNK
     Route: 048
     Dates: start: 20071207
  2. SULPIRIDE [Concomitant]
     Indication: SCHIZOPHRENIA
     Dosage: 1600 MG, UNK
     Route: 048
  3. VALPROATE SODIUM [Concomitant]
     Indication: MOOD ALTERED
     Dosage: 800 MG, UNK
  4. CITALOPRAM HYDROBROMIDE [Concomitant]
     Indication: DEPRESSION
     Dosage: 20 MG, UNK
     Route: 048
  5. HYOSCINE [Concomitant]
     Indication: SALIVARY HYPERSECRETION
     Dosage: 600 UG, UNK
     Dates: start: 20080101
  6. OMEPRAZOLE [Concomitant]
     Indication: GASTRITIS
     Dosage: 10 MG, UNK
     Route: 048
  7. OXYBUTYNIN CHLORIDE [Concomitant]
     Indication: SALIVARY HYPERSECRETION
     Dosage: 10 MG, UNK
     Route: 048
  8. DEPO-PROVERA [Concomitant]
     Indication: CONTRACEPTION
     Dosage: 150 MG IM

REACTIONS (4)
  - HAEMOGLOBIN DECREASED [None]
  - NEUTROPENIA [None]
  - WEIGHT INCREASED [None]
  - WHITE BLOOD CELL COUNT DECREASED [None]
